FAERS Safety Report 5924836-0 (Version None)
Quarter: 2008Q4

REPORT INFORMATION
  Report Type: 
  Country: None (occurrence: None)
  Receive Date: 20081020
  Receipt Date: 20081020
  Transmission Date: 20090506
  Serious: Yes (Other)
  Sender: FDA-Public Use
  Company Number: None

PATIENT
  Age: 78 Year
  Sex: Male
  Weight: 72.5755 kg

DRUGS (3)
  1. ZOLPIDEM [Suspect]
     Dosage: 1 AT HS ORAL  ONE TIME
     Route: 048
     Dates: start: 20080909
  2. NORVASC [Concomitant]
  3. OMEPRAZOLE [Concomitant]

REACTIONS (4)
  - CONFUSIONAL STATE [None]
  - DIZZINESS [None]
  - GAIT DISTURBANCE [None]
  - ILL-DEFINED DISORDER [None]
